FAERS Safety Report 14367659 (Version 2)
Quarter: 2018Q1

REPORT INFORMATION
  Report Type: Report from Study
  Country: JP (occurrence: JP)
  Receive Date: 20180109
  Receipt Date: 20180329
  Transmission Date: 20180509
  Serious: Yes (Hospitalization, Other)
  Sender: FDA-Public Use
  Company Number: JP-ROCHE-1773907

PATIENT
  Age: 6 Year
  Sex: Female
  Weight: 40 kg

DRUGS (26)
  1. NEORAL [Suspect]
     Active Substance: CYCLOSPORINE
     Indication: NEPHROTIC SYNDROME
     Route: 048
     Dates: start: 20121010, end: 20150216
  2. CALONAL [Concomitant]
     Active Substance: ACETAMINOPHEN
     Dosage: SINGLE DOSE, PREMEDICATION BEFORE RITUXIMAB INFUSION.
     Route: 048
     Dates: start: 20160609, end: 20160609
  3. ONEALFA [Concomitant]
     Active Substance: ALFACALCIDOL
     Indication: PROPHYLAXIS
     Route: 048
     Dates: start: 20150506, end: 20151215
  4. GASTER [Concomitant]
     Active Substance: FAMOTIDINE
     Route: 048
     Dates: start: 20160513
  5. BAKTAR [Concomitant]
     Active Substance: SULFAMETHOXAZOLE\TRIMETHOPRIM
     Indication: INFECTION PROPHYLAXIS
     Route: 048
     Dates: start: 20150803, end: 20160214
  6. GASTER [Concomitant]
     Active Substance: FAMOTIDINE
     Indication: PROPHYLAXIS
     Route: 048
     Dates: start: 20150506, end: 20151215
  7. PERSANTIN [Concomitant]
     Active Substance: DIPYRIDAMOLE
     Route: 048
     Dates: start: 20151130
  8. PREDONINE [Suspect]
     Active Substance: PREDNISOLONE
     Indication: PREMEDICATION
     Dosage: SINGLE DOSE, PREMEDICATION BEFORE RITUXIMAB INFUSION.
     Route: 048
     Dates: start: 20150731, end: 20150731
  9. RITUXIMAB. [Suspect]
     Active Substance: RITUXIMAB
     Dosage: SECOND DOSE OF RITUXIMAB
     Route: 041
     Dates: start: 20160609
  10. PREDONINE [Suspect]
     Active Substance: PREDNISOLONE
     Indication: NEPHROTIC SYNDROME
     Dosage: 45-5 MG
     Route: 048
     Dates: start: 20150506, end: 20151215
  11. ONEALFA [Concomitant]
     Active Substance: ALFACALCIDOL
     Route: 048
     Dates: start: 20160513
  12. POLARAMINE [Concomitant]
     Active Substance: DEXCHLORPHENIRAMINE MALEATE
     Indication: PREMEDICATION
     Route: 048
     Dates: start: 20160609, end: 20160609
  13. BLOPRESS [Concomitant]
     Active Substance: CANDESARTAN CILEXETIL
     Indication: HYPERTENSION
     Route: 048
     Dates: start: 20170508
  14. ITRACONAZOLE. [Concomitant]
     Active Substance: ITRACONAZOLE
     Indication: INFECTION PROPHYLAXIS
     Route: 048
     Dates: start: 20170804
  15. PREDONINE [Suspect]
     Active Substance: PREDNISOLONE
     Dosage: 45-5 MG DAILY-EVERY OTHER DAY
     Route: 048
     Dates: start: 20160513
  16. BAKTAR [Concomitant]
     Active Substance: SULFAMETHOXAZOLE\TRIMETHOPRIM
     Route: 048
     Dates: start: 20160610
  17. SEPAMIT [Concomitant]
     Active Substance: NIFEDIPINE
     Indication: HYPERTENSION
     Route: 048
     Dates: start: 20170309, end: 20170507
  18. AMLODIPINE BESILATE [Concomitant]
     Active Substance: AMLODIPINE BESYLATE
     Indication: HYPERTENSION
     Route: 048
     Dates: start: 20170720
  19. RITUXIMAB. [Suspect]
     Active Substance: RITUXIMAB
     Indication: NEPHROTIC SYNDROME
     Route: 041
     Dates: start: 20150731
  20. MYCOPHENOLATE MOFETIL. [Suspect]
     Active Substance: MYCOPHENOLATE MOFETIL
     Indication: NEPHROTIC SYNDROME
     Dosage: 750-850MG
     Route: 048
     Dates: start: 20121016
  21. PERIACTIN [Concomitant]
     Active Substance: CYPROHEPTADINE HYDROCHLORIDE
     Indication: PREMEDICATION
     Dosage: SINGLE DOSE, PREMEDICATION BEFORE RITUXIMAB INFUSION.
     Route: 048
     Dates: start: 20150731, end: 20150731
  22. CALBLOCK [Concomitant]
     Active Substance: AZELNIDIPINE
     Indication: HYPERTENSION
     Route: 048
     Dates: start: 20170508, end: 20170719
  23. NIFEDIPINE. [Concomitant]
     Active Substance: NIFEDIPINE
     Indication: HYPERTENSION
     Route: 042
     Dates: start: 20170710, end: 20170718
  24. PREDONINE [Suspect]
     Active Substance: PREDNISOLONE
     Dosage: SINGLE DOSE, PREMEDICATION BEFORE RITUXIMAB INFUSION.
     Route: 048
     Dates: start: 20160609, end: 20160609
  25. CALONAL [Concomitant]
     Active Substance: ACETAMINOPHEN
     Indication: PREMEDICATION
     Dosage: SINGLE DOSE, PREMEDICATION BEFORE RITUXIMAB INFUSION.
     Route: 048
     Dates: start: 20150731, end: 20150731
  26. ENDOXAN [Concomitant]
     Active Substance: CYCLOPHOSPHAMIDE
     Indication: NEPHROTIC SYNDROME
     Route: 042
     Dates: start: 20170712, end: 20170731

REACTIONS (20)
  - Hypertension [Recovered/Resolved with Sequelae]
  - Abdominal pain [Recovering/Resolving]
  - Faeces soft [Recovering/Resolving]
  - Rhinorrhoea [Recovering/Resolving]
  - Otitis media [Recovered/Resolved]
  - Oropharyngeal discomfort [Recovered/Resolved]
  - Pyrexia [Recovered/Resolved]
  - C-reactive protein increased [Recovered/Resolved]
  - Vomiting [Recovering/Resolving]
  - Gastroenteritis [Recovering/Resolving]
  - Seizure [Recovering/Resolving]
  - Cough [Recovered/Resolved]
  - Cystitis [Recovering/Resolving]
  - Otitis media [Recovered/Resolved]
  - Oropharyngeal pain [Recovered/Resolved]
  - Cough [Recovered/Resolved]
  - Abdominal pain [Recovered/Resolved]
  - Bronchitis [Recovered/Resolved]
  - Abdominal pain [Recovered/Resolved]
  - Pyuria [Recovering/Resolving]

NARRATIVE: CASE EVENT DATE: 20150731
